FAERS Safety Report 25529794 (Version 1)
Quarter: 2025Q3

REPORT INFORMATION
  Report Type: Report from Study
  Country: US (occurrence: US)
  Receive Date: 20250708
  Receipt Date: 20250708
  Transmission Date: 20251021
  Serious: Yes (Hospitalization)
  Sender: EISAI
  Company Number: US-Eisai-EC-2025-192860

PATIENT
  Age: 64 Year
  Sex: Female

DRUGS (5)
  1. LENVIMA [Suspect]
     Active Substance: LENVATINIB
     Indication: Hepatic cancer
     Dosage: HELD FOR 5 DAYS
     Dates: start: 20240924, end: 202410
  2. LENVIMA [Suspect]
     Active Substance: LENVATINIB
     Dosage: HELD FOR 2 DAYS
     Dates: start: 202410, end: 202411
  3. LENVIMA [Suspect]
     Active Substance: LENVATINIB
     Dates: start: 20250617
  4. LENVIMA [Suspect]
     Active Substance: LENVATINIB
     Dates: start: 202411, end: 20250613
  5. LOSARTAN [Concomitant]
     Active Substance: LOSARTAN

REACTIONS (1)
  - Syncope [Recovered/Resolved]

NARRATIVE: CASE EVENT DATE: 20250601
